FAERS Safety Report 23354784 (Version 1)
Quarter: 2024Q1

REPORT INFORMATION
  Report Type: Report from Study
  Country: NL (occurrence: NL)
  Receive Date: 20240101
  Receipt Date: 20240101
  Transmission Date: 20240410
  Serious: Yes (Hospitalization)
  Sender: FDA-Public Use
  Company Number: NL-AstraZeneca-2023A295480

PATIENT
  Age: 4 Month
  Sex: Female
  Weight: 3.9 kg

DRUGS (2)
  1. SYNAGIS [Suspect]
     Active Substance: PALIVIZUMAB
     Indication: Antiviral prophylaxis
     Dosage: 15 MG/KG, MONTHLY
     Route: 030
     Dates: start: 20231012
  2. IRON [Concomitant]
     Active Substance: IRON
     Indication: Product used for unknown indication
     Dosage: FERRIC HYDROXIDE POLYMALTOSE COMPLEX: 20.0 MG/ML

REACTIONS (1)
  - Poor feeding infant [Not Recovered/Not Resolved]
